FAERS Safety Report 4490337-2 (Version None)
Quarter: 2004Q4

REPORT INFORMATION
  Report Type: 
  Country: None (occurrence: None)
  Receive Date: 20041102
  Receipt Date: 20041026
  Transmission Date: 20050328
  Serious: Yes (Other)
  Sender: FDA-Public Use
  Company Number: PHBS2004CA14310

PATIENT
  Age: 82 Year
  Sex: Female

DRUGS (1)
  1. LAMISIL [Suspect]
     Dosage: 250 MG/D
     Route: 048
     Dates: start: 20040915, end: 20041008

REACTIONS (5)
  - DIFFICULTY IN WALKING [None]
  - GENERALISED ERYTHEMA [None]
  - RASH [None]
  - RASH GENERALISED [None]
  - URTICARIA [None]
